FAERS Safety Report 12075306 (Version 24)
Quarter: 2019Q1

REPORT INFORMATION
  Report Type: Report from Study
  Country: US (occurrence: US)
  Receive Date: 20160212
  Receipt Date: 20190325
  Transmission Date: 20190417
  Serious: Yes (Death, Life-Threatening, Hospitalization, Other)
  Sender: FDA-Public Use
  Company Number: US-ACTELION-A-US2016-131384

PATIENT
  Age: 75 Year
  Sex: Male
  Weight: 107.94 kg

DRUGS (11)
  1. OPSUMIT [Suspect]
     Active Substance: MACITENTAN
     Indication: PULMONARY HYPERTENSION
     Dosage: 10 MG, QD
     Route: 048
     Dates: start: 20151111, end: 20180903
  2. ATENOLOL. [Suspect]
     Active Substance: ATENOLOL
     Indication: PRODUCT USED FOR UNKNOWN INDICATION
     Dosage: 20 UNK, UNK
     Route: 048
  3. WARFARIN [Concomitant]
     Active Substance: WARFARIN
     Dosage: 5 MG, UNK
  4. KCL [Suspect]
     Active Substance: POTASSIUM CHLORIDE
     Dosage: 10 MEQ, QD
     Route: 048
  5. MORPHINE SULPHATE [Concomitant]
     Active Substance: MORPHINE SULFATE
     Dosage: UNK
     Dates: start: 20180823
  6. DIGOXIN. [Suspect]
     Active Substance: DIGOXIN
     Indication: PRODUCT USED FOR UNKNOWN INDICATION
     Dosage: 0.125 UNK, QD
     Route: 048
     Dates: start: 20160314
  7. TORSEMIDE. [Suspect]
     Active Substance: TORSEMIDE
     Indication: PRODUCT USED FOR UNKNOWN INDICATION
     Dosage: 20 MG, UNK
     Route: 048
     Dates: start: 20151113
  8. METFORMIN [Suspect]
     Active Substance: METFORMIN HYDROCHLORIDE
     Indication: DIABETES MELLITUS
     Dosage: 500 MG, UNK
     Route: 048
     Dates: start: 20151216
  9. METFORMIN [Suspect]
     Active Substance: METFORMIN HYDROCHLORIDE
     Dosage: 2000 MG, QD
     Route: 048
  10. KCL [Suspect]
     Active Substance: POTASSIUM CHLORIDE
     Indication: PRODUCT USED FOR UNKNOWN INDICATION
     Dosage: 20 MG, UNK
     Route: 065
  11. ALLOPURINOL. [Suspect]
     Active Substance: ALLOPURINOL
     Indication: GOUT
     Dosage: 300 MG, QD
     Route: 048

REACTIONS (51)
  - Acute myocardial infarction [Fatal]
  - Blood bilirubin increased [Unknown]
  - Cellulitis [Recovered/Resolved]
  - Neutrophil count increased [Unknown]
  - C-reactive protein increased [Unknown]
  - Palpitations [Unknown]
  - Culture positive [Recovered/Resolved]
  - Hyperkeratosis [Unknown]
  - Tenderness [Recovered/Resolved]
  - Dizziness [Unknown]
  - Treatment noncompliance [Unknown]
  - Sepsis [Fatal]
  - Syncope [Recovered/Resolved]
  - Rhabdomyolysis [Not Recovered/Not Resolved]
  - Cardiac pacemaker insertion [Recovered/Resolved]
  - Swelling [Recovered/Resolved]
  - Bronchitis [Recovered/Resolved]
  - Aspartate aminotransferase increased [Unknown]
  - Ostectomy [Recovered/Resolved]
  - Vertigo [Unknown]
  - Intermittent claudication [Not Recovered/Not Resolved]
  - Limb injury [Recovered/Resolved]
  - Cor pulmonale [Unknown]
  - Coagulopathy [Fatal]
  - Dyspnoea [Fatal]
  - Orthostatic hypotension [Not Recovered/Not Resolved]
  - Cough [Recovered/Resolved]
  - Pulmonary arterial hypertension [Unknown]
  - Condition aggravated [Unknown]
  - Acute respiratory failure [Not Recovered/Not Resolved]
  - Ventricular extrasystoles [Recovered/Resolved]
  - Arrhythmia [Unknown]
  - Pain in extremity [Unknown]
  - Erythema [Recovered/Resolved]
  - Finger amputation [Recovered/Resolved]
  - Multiple organ dysfunction syndrome [Fatal]
  - Bradycardia [Recovered/Resolved]
  - Cardiac failure congestive [Unknown]
  - Osteomyelitis chronic [Recovered/Resolved]
  - Blood urea increased [Unknown]
  - Cholecystitis infective [Fatal]
  - Brain natriuretic peptide increased [Fatal]
  - Atrial fibrillation [Unknown]
  - Mitral valve incompetence [Fatal]
  - Cardiac murmur [Fatal]
  - Herpes zoster [Fatal]
  - Sinus node dysfunction [Recovered/Resolved]
  - Upper respiratory tract infection [Recovered/Resolved]
  - Joint warmth [Recovered/Resolved]
  - Peripheral artery stenosis [Not Recovered/Not Resolved]
  - Coronary artery stenosis [Unknown]

NARRATIVE: CASE EVENT DATE: 20160126
